FAERS Safety Report 14566459 (Version 3)
Quarter: 2018Q4

REPORT INFORMATION
  Report Type: Report from Study
  Country: CN (occurrence: CN)
  Receive Date: 20180223
  Receipt Date: 20181227
  Transmission Date: 20190204
  Serious: Yes (Hospitalization, Other)
  Sender: FDA-Public Use
  Company Number: PHHY2018CN025028

PATIENT
  Age: 53 Year
  Sex: Female
  Weight: 58 kg

DRUGS (3)
  1. LETROZOLE. [Suspect]
     Active Substance: LETROZOLE
     Indication: BREAST CANCER
     Dosage: 2.5 MG, QD (28 DAYS CYCLE)
     Route: 048
     Dates: start: 20171106, end: 20180115
  2. ERYTHROMYCIN. [Concomitant]
     Active Substance: ERYTHROMYCIN
     Indication: PYREXIA
     Dosage: 0.25 G, TID
     Route: 048
     Dates: start: 20171107
  3. POTASSIUM CHLORIDE. [Concomitant]
     Active Substance: POTASSIUM CHLORIDE
     Indication: PRODUCT USED FOR UNKNOWN INDICATION
     Dosage: UNK
     Dates: start: 20180117, end: 20180124

REACTIONS (7)
  - Eyelid ptosis [Unknown]
  - Pyrexia [Unknown]
  - Eye swelling [Unknown]
  - Paralysis [Unknown]
  - Diplopia [Unknown]
  - Gaze palsy [Recovering/Resolving]
  - Diarrhoea [Recovered/Resolved]

NARRATIVE: CASE EVENT DATE: 20171106
